FAERS Safety Report 8221140-5 (Version None)
Quarter: 2012Q1

REPORT INFORMATION
  Report Type: 
  Country: None (occurrence: None)
  Receive Date: 20120320
  Receipt Date: 20120313
  Transmission Date: 20120608
  Serious: Yes (Hospitalization, Other)
  Sender: FDA-Public Use
  Company Number: US-PFIZER INC-2012017403

PATIENT
  Sex: Female
  Weight: 68 kg

DRUGS (23)
  1. IBUPROFEN [Suspect]
     Dosage: HIGH, TID
     Route: 048
     Dates: start: 20100713
  2. NAPROXEN [Suspect]
  3. BLINDED PLACEBO [Suspect]
     Indication: RHEUMATOID ARTHRITIS
  4. REVLIMID [Concomitant]
     Indication: NON-HODGKIN'S LYMPHOMA
     Dosage: 10 MG, 1X/DAY
     Route: 048
     Dates: start: 20110701
  5. NAPROXEN [Suspect]
     Dosage: HIGH, TID
     Route: 048
     Dates: start: 20100713
  6. NEXIUM [Concomitant]
     Indication: GASTRITIS PROPHYLAXIS
     Dosage: 20 MG, 1X/DAY
     Route: 048
     Dates: start: 20100713
  7. MULTI-VITAMINS [Concomitant]
     Indication: SUPPLEMENTATION THERAPY
     Dosage: 1 TAB
     Route: 048
     Dates: start: 19960101
  8. BLINDED PLACEBO [Suspect]
     Indication: OSTEOARTHRITIS
     Dosage: HIGH, TID
     Route: 048
     Dates: start: 20100713
  9. NAPROXEN [Suspect]
     Indication: RHEUMATOID ARTHRITIS
  10. LEVOTHROID [Concomitant]
     Indication: HYPOTHYROIDISM
     Dosage: 0.25 UG, 1X/DAY
     Route: 048
     Dates: start: 20100425
  11. LOVASTATIN [Concomitant]
     Indication: DYSLIPIDAEMIA
     Dosage: 40 MG, 1X/DAY
     Route: 048
     Dates: start: 20030101
  12. OXYBUTYNIN [Concomitant]
     Indication: URINARY INCONTINENCE
     Dosage: 10 MG, 1X/DAY
     Route: 048
     Dates: start: 20041114
  13. IBUPROFEN [Suspect]
     Indication: OSTEOARTHRITIS
     Dosage: HIGH, TID
     Route: 048
     Dates: start: 20100713
  14. BLINDED NO SUBJECT DRUG [Suspect]
     Indication: RHEUMATOID ARTHRITIS
  15. VERAPAMIL HCL [Suspect]
     Indication: HYPERTENSION
     Dosage: 240 MG, 1X/DAY
     Route: 048
     Dates: start: 20040601, end: 20110903
  16. NAPROXEN [Suspect]
     Indication: OSTEOARTHRITIS
     Dosage: HIGH, TID
     Route: 048
     Dates: start: 20100713
  17. CELECOXIB [Suspect]
     Indication: RHEUMATOID ARTHRITIS
  18. IBUPROFEN [Suspect]
     Indication: RHEUMATOID ARTHRITIS
  19. RITUXAN [Concomitant]
     Indication: NON-HODGKIN'S LYMPHOMA
     Dosage: 1900 MG, WEEKLY
     Route: 042
     Dates: start: 20110715
  20. CELECOXIB [Suspect]
     Indication: OSTEOARTHRITIS
     Dosage: HIGH, TID
     Route: 048
     Dates: start: 20100713
  21. BLINDED NO SUBJECT DRUG [Suspect]
     Indication: OSTEOARTHRITIS
     Dosage: HIGH, TID
     Route: 048
     Dates: start: 20100713
  22. IBUPROFEN [Suspect]
  23. BISACODYL [Concomitant]
     Indication: CONSTIPATION
     Dosage: 1 TAB
     Route: 048
     Dates: start: 20100101

REACTIONS (2)
  - FAECALOMA [None]
  - NON-HODGKIN'S LYMPHOMA [None]
